FAERS Safety Report 13802339 (Version 3)
Quarter: 2017Q3

REPORT INFORMATION
  Report Type: Report from Study
  Country: JP (occurrence: JP)
  Receive Date: 20170727
  Receipt Date: 20170828
  Transmission Date: 20171127
  Serious: Yes (Hospitalization)
  Sender: FDA-Public Use
  Company Number: JP-TAKEDA-2017TUS015556

PATIENT
  Age: 32 Year
  Sex: Female
  Weight: 55.9 kg

DRUGS (8)
  1. SALAZOPYRIN [Concomitant]
     Active Substance: SULFASALAZINE
     Indication: CROHN^S DISEASE
     Dosage: 1500 MG, TID
     Route: 048
     Dates: start: 20151218, end: 20170719
  2. AZANIN [Concomitant]
     Active Substance: AZATHIOPRINE
     Indication: CROHN^S DISEASE
     Dosage: 75 MG, QD
     Route: 048
     Dates: start: 20160525, end: 20170719
  3. TAKECAB [Concomitant]
     Active Substance: VONOPRAZAN FUMURATE
     Indication: PROPHYLAXIS
     Dosage: 10 MG, QD
     Route: 048
     Dates: start: 20160427, end: 20170719
  4. VEDOLIZUMAB [Suspect]
     Active Substance: VEDOLIZUMAB
     Dosage: 108 MG, Q2WEEKS
     Route: 058
     Dates: start: 20170808
  5. BIO-THREE [Concomitant]
     Active Substance: HERBALS
     Indication: CROHN^S DISEASE
     Dosage: 2/10/10 MG, TID
     Route: 048
     Dates: start: 20160907, end: 20170719
  6. LOXONIN [Concomitant]
     Active Substance: LOXOPROFEN SODIUM
     Indication: CROHN^S DISEASE
     Dosage: 60 MG, UNK
     Route: 048
     Dates: start: 20160907, end: 20170718
  7. REBAMIPIDE [Concomitant]
     Active Substance: REBAMIPIDE
     Indication: PROPHYLAXIS
     Dosage: 100 MG, TID
     Route: 048
     Dates: start: 20160427, end: 20170719
  8. VEDOLIZUMAB [Suspect]
     Active Substance: VEDOLIZUMAB
     Indication: CROHN^S DISEASE
     Dosage: 108 MG, Q2WEEKS
     Route: 058
     Dates: start: 20170623

REACTIONS (1)
  - Pneumonia [Recovered/Resolved]

NARRATIVE: CASE EVENT DATE: 20170716
